FAERS Safety Report 22352065 (Version 1)
Quarter: 2023Q2

REPORT INFORMATION
  Report Type: Spontaneous
  Country: US (occurrence: US)
  Receive Date: 20230522
  Receipt Date: 20230522
  Transmission Date: 20230721
  Serious: No
  Sender: FDA-Public Use
  Company Number: US-PFIZER INC-PV202300087990

PATIENT
  Age: 28 Year
  Sex: Male

DRUGS (1)
  1. OXBRYTA [Suspect]
     Active Substance: VOXELOTOR
     Dosage: 3 DF, DAILY (500MG TABLETS. TAKE THREE TABLETS BY MOUTH ONCE DAILY)
     Route: 048
     Dates: start: 20200326

REACTIONS (2)
  - Headache [Unknown]
  - Intentional product misuse [Unknown]
